FAERS Safety Report 4390904-0 (Version None)
Quarter: 2004Q2

REPORT INFORMATION
  Report Type: 
  Country: None (occurrence: None)
  Receive Date: 20040630
  Receipt Date: 20040616
  Transmission Date: 20050107
  Serious: Yes (Hospitalization)
  Sender: FDA-Public Use
  Company Number: 162218

PATIENT
  Age: 39 Year
  Sex: Female

DRUGS (1)
  1. AVONEX [Suspect]
     Indication: MULTIPLE SCLEROSIS
     Dosage: 30 MCG, QW, IM
     Route: 030
     Dates: start: 20020314

REACTIONS (5)
  - BENIGN UTERINE NEOPLASM [None]
  - CHILLS [None]
  - HEADACHE [None]
  - INFLUENZA LIKE ILLNESS [None]
  - MYALGIA [None]
